FAERS Safety Report 5010388-9 (Version None)
Quarter: 2006Q2

REPORT INFORMATION
  Report Type: 
  Country: None (occurrence: None)
  Receive Date: 20060523
  Receipt Date: 20060504
  Transmission Date: 20061013
  Serious: Yes (Death)
  Sender: FDA-Public Use
  Company Number: T200600442

PATIENT
  Age: 41 Year
  Sex: Male

DRUGS (2)
  1. OXYCODONE HCL AND ACETAMINOPHEN [Suspect]
     Dosage: 5/500MG, ORAL
     Route: 048
  2. FENTANYL [Suspect]
     Dosage: 50; 75 UG, HR, TRANSDERMAL;
     Route: 062

REACTIONS (7)
  - CARDIOMYOPATHY [None]
  - DRUG TOXICITY [None]
  - DYSPNOEA [None]
  - FLUID RETENTION [None]
  - HYPERSOMNIA [None]
  - OEDEMA [None]
  - URINARY RETENTION [None]
